FAERS Safety Report 7985520-5 (Version None)
Quarter: 2011Q4

REPORT INFORMATION
  Report Type: 
  Country: None (occurrence: None)
  Receive Date: 20111216
  Receipt Date: 20111212
  Transmission Date: 20120403
  Serious: Yes (Hospitalization, Other)
  Sender: FDA-Public Use
  Company Number: US-AMGEN-USASP2011066065

PATIENT
  Age: 74 Year
  Sex: Female

DRUGS (1)
  1. ENBREL [Suspect]
     Indication: RHEUMATOID ARTHRITIS
     Dosage: 25 MG, 2 TIMES/WK
     Dates: start: 19980201

REACTIONS (4)
  - ATRIAL FIBRILLATION [None]
  - ARTHRALGIA [None]
  - IMPLANTABLE DEFIBRILLATOR INSERTION [None]
  - PAIN IN EXTREMITY [None]
